FAERS Safety Report 4731465-3 (Version None)
Quarter: 2005Q3

REPORT INFORMATION
  Report Type: 
  Country: None (occurrence: None)
  Receive Date: 20050801
  Receipt Date: 20050801
  Transmission Date: 20060218
  Serious: Yes (Other)
  Sender: FDA-Public Use
  Company Number: None

PATIENT
  Age: 37 Year
  Sex: Female
  Weight: 72.5755 kg

DRUGS (3)
  1. CYMBALTA [Suspect]
     Indication: DEPRESSION
     Dosage: 1X DAILY   MORNING  ORAL
     Route: 048
  2. CYMBALTA [Suspect]
     Indication: PANIC ATTACK
     Dosage: 1X DAILY   MORNING  ORAL
     Route: 048
  3. HORMONE REPLACEMENTS [Concomitant]

REACTIONS (3)
  - DRUG WITHDRAWAL SYNDROME [None]
  - IATROGENIC INJURY [None]
  - PHARMACEUTICAL PRODUCT COMPLAINT [None]
